FAERS Safety Report 4465077-6 (Version None)
Quarter: 2004Q3

REPORT INFORMATION
  Report Type: 
  Country: None (occurrence: None)
  Receive Date: 20040929
  Receipt Date: 20040908
  Transmission Date: 20050211
  Serious: No
  Sender: FDA-Public Use
  Company Number: USA040771704

PATIENT
  Age: 65 Year
  Sex: Female

DRUGS (1)
  1. EVISTA [Suspect]
     Indication: OSTEOPOROSIS

REACTIONS (3)
  - ACTIVITIES OF DAILY LIVING IMPAIRED [None]
  - BODY HEIGHT DECREASED [None]
  - FRACTURE [None]
